FAERS Safety Report 6096915-1 (Version None)
Quarter: 2009Q1

REPORT INFORMATION
  Report Type: 
  Country: None (occurrence: None)
  Receive Date: 20090227
  Receipt Date: 20090216
  Transmission Date: 20090719
  Serious: Yes (Hospitalization, Other)
  Sender: FDA-Public Use
  Company Number: DE-PFIZER INC-2009170808

PATIENT

DRUGS (1)
  1. SOBELIN [Suspect]
     Dosage: 300 MG, 4X/DAY
     Dates: start: 20090101, end: 20090201

REACTIONS (4)
  - APLASTIC ANAEMIA [None]
  - HOSPITALISATION [None]
  - PANCYTOPENIA [None]
  - RETICULOCYTE COUNT DECREASED [None]
